FAERS Safety Report 8219451-2 (Version None)
Quarter: 2012Q1

REPORT INFORMATION
  Report Type: 
  Country: None (occurrence: None)
  Receive Date: 20120319
  Receipt Date: 20120305
  Transmission Date: 20120608
  Serious: Yes (Hospitalization)
  Sender: FDA-Public Use
  Company Number: GB-CELGENEUS-167-50794-12030480

PATIENT
  Sex: Male

DRUGS (7)
  1. VIDAZA [Suspect]
     Route: 065
     Dates: start: 20111017, end: 20120127
  2. VIDAZA [Suspect]
     Route: 065
     Dates: start: 20110824, end: 20110831
  3. VORICONAZOLE [Concomitant]
     Route: 065
  4. ACYCLOVIR [Concomitant]
     Route: 065
  5. OMEPRAZOLE [Concomitant]
     Route: 065
     Dates: end: 20120301
  6. VIDAZA [Suspect]
     Route: 058
     Dates: start: 20110718, end: 20110728
  7. RANITIDINE [Concomitant]
     Route: 065
     Dates: start: 20120301

REACTIONS (3)
  - MALAISE [None]
  - PYREXIA [None]
  - LIVER FUNCTION TEST ABNORMAL [None]
